FAERS Safety Report 13263685 (Version 3)
Quarter: 2018Q1

REPORT INFORMATION
  Report Type: Report from Study
  Country: CZ (occurrence: CZ)
  Receive Date: 20170223
  Receipt Date: 20180103
  Transmission Date: 20180508
  Serious: Yes (Other)
  Sender: FDA-Public Use
  Company Number: CZ-CELGENEUS-CZE-2017023503

PATIENT
  Age: 62 Year
  Sex: Female

DRUGS (2)
  1. IMNOVID [Suspect]
     Active Substance: POMALIDOMIDE
     Indication: PLASMA CELL MYELOMA
     Dosage: 4 MILLIGRAM
     Route: 048
     Dates: end: 20160624
  2. DEXAMETHASONE. [Concomitant]
     Active Substance: DEXAMETHASONE
     Indication: PLASMA CELL MYELOMA
     Route: 048
     Dates: end: 20160624

REACTIONS (10)
  - Neuropathy peripheral [Unknown]
  - Liver disorder [Unknown]
  - Hypocalcaemia [Unknown]
  - Rhinitis [Unknown]
  - Muscle spasms [Unknown]
  - Colitis [Unknown]
  - Anaemia [Unknown]
  - Gait disturbance [Unknown]
  - Hypoglycaemia [Unknown]
  - Fatigue [Unknown]

NARRATIVE: CASE EVENT DATE: 20141202
